FAERS Safety Report 23854049 (Version 1)
Quarter: 2024Q2

REPORT INFORMATION
  Report Type: Spontaneous
  Country: CA (occurrence: CA)
  Receive Date: 20240514
  Receipt Date: 20240514
  Transmission Date: 20240716
  Serious: Yes (Other)
  Sender: FDA-Public Use
  Company Number: CA-FreseniusKabi-FK202407270

PATIENT
  Age: 30 Year
  Sex: Male

DRUGS (2)
  1. ETOPOSIDE [Suspect]
     Active Substance: ETOPOSIDE
     Indication: Testis cancer
     Dosage: DOSAGE FORM- NOT SPECIFIED?ROUTE OF ADMIN- UNK
  2. CISPLATIN [Concomitant]
     Active Substance: CISPLATIN
     Indication: Product used for unknown indication
     Dosage: DOSAGE FORM- SOLUTION INTRAVENOUS
     Route: 042

REACTIONS (10)
  - Anaphylactic shock [Unknown]
  - Back pain [Unknown]
  - Bradycardia [Unknown]
  - Chest pain [Unknown]
  - Dizziness [Unknown]
  - Dyspnoea [Unknown]
  - Flushing [Unknown]
  - Hypotension [Unknown]
  - Nausea [Unknown]
  - Oxygen saturation abnormal [Unknown]
